FAERS Safety Report 7413181-2 (Version None)
Quarter: 2011Q2

REPORT INFORMATION
  Report Type: 
  Country: None (occurrence: None)
  Receive Date: 20110413
  Receipt Date: 20110408
  Transmission Date: 20111010
  Serious: Yes (Other)
  Sender: FDA-Public Use
  Company Number: CN-PFIZER INC-2011078536

PATIENT
  Age: 75 Year
  Sex: Female

DRUGS (3)
  1. AMBROXOL [Concomitant]
  2. LEVOFLOXACIN [Concomitant]
  3. SULPERAZON [Suspect]
     Indication: LUNG INFECTION
     Dosage: 1.5
     Route: 042
     Dates: start: 20110407

REACTIONS (1)
  - CEREBRAL INFARCTION [None]
